FAERS Safety Report 4721583-8 (Version None)
Quarter: 2005Q3

REPORT INFORMATION
  Report Type: 
  Country: None (occurrence: None)
  Receive Date: 20050721
  Receipt Date: 20041209
  Transmission Date: 20060218
  Serious: No
  Sender: FDA-Public Use
  Company Number: US-BRISTOL-MYERS SQUIBB COMPANY-12791091

PATIENT
  Age: 86 Year
  Sex: Male

DRUGS (1)
  1. COUMADIN [Suspect]
     Dosage: CURRENTLY RECEIVES 9.0 MG/WK: 1.5,1.0,1.5,1.0,1.5,1.0,1.5

REACTIONS (1)
  - INTERNATIONAL NORMALISED RATIO ABNORMAL [None]
